FAERS Safety Report 6042963-7 (Version None)
Quarter: 2009Q1

REPORT INFORMATION
  Report Type: 
  Country: None (occurrence: None)
  Receive Date: 20090119
  Receipt Date: 20090109
  Transmission Date: 20090719
  Serious: Yes (Death, Hospitalization, Other)
  Sender: FDA-Public Use
  Company Number: JP-BAYER-200811562BYL

PATIENT
  Age: 81 Year
  Sex: Female
  Weight: 33 kg

DRUGS (6)
  1. FLUDARA [Suspect]
     Indication: LYMPHOMA
     Dosage: AS USED: 20 MG  UNIT DOSE: 50 MG
     Route: 042
     Dates: start: 20080630, end: 20080704
  2. RISPERDAL [Concomitant]
     Dosage: TOTAL DAILY DOSE: 1 ML
     Route: 048
     Dates: start: 20080704, end: 20080705
  3. ASPIRIN [Concomitant]
     Dosage: TOTAL DAILY DOSE: 100 MG  UNIT DOSE: 100 MG
     Route: 048
     Dates: start: 20080630, end: 20080705
  4. LANIRAPID [Concomitant]
     Dosage: TOTAL DAILY DOSE: 0.05 MG
     Route: 048
     Dates: start: 20080701, end: 20080705
  5. LASIX [Concomitant]
     Dosage: TOTAL DAILY DOSE: 20 MG  UNIT DOSE: 20 MG
     Route: 048
     Dates: start: 20080630, end: 20080705
  6. MEROPEN [Concomitant]
     Route: 065
     Dates: start: 20080730, end: 20080803

REACTIONS (5)
  - CYTOMEGALOVIRUS INFECTION [None]
  - DEPRESSED LEVEL OF CONSCIOUSNESS [None]
  - GAIT DISTURBANCE [None]
  - HYPOTHYROIDISM [None]
  - INTERSTITIAL LUNG DISEASE [None]
